FAERS Safety Report 11362515 (Version 1)
Quarter: 2015Q3

REPORT INFORMATION
  Report Type: Spontaneous
  Country: GB (occurrence: GB)
  Receive Date: 20150810
  Receipt Date: 20150810
  Transmission Date: 20151125
  Serious: Yes (Other)
  Sender: FDA-Public Use
  Company Number: GB-AMGEN-GBRSP2015041021

PATIENT
  Age: 35 Year
  Sex: Male
  Weight: 100 kg

DRUGS (7)
  1. EPLERENONE. [Concomitant]
     Active Substance: EPLERENONE
     Dosage: 50 MG, DAILY
     Dates: start: 201310
  2. WARFARIN SODIUM. [Concomitant]
     Active Substance: WARFARIN SODIUM
     Dosage: UNK
     Dates: start: 201310
  3. BISOPROLOL FUMARATE. [Concomitant]
     Active Substance: BISOPROLOL FUMARATE
     Dosage: 10 MG, DAILY
     Dates: start: 201310
  4. CLARITHROMYCIN. [Suspect]
     Active Substance: CLARITHROMYCIN
     Indication: LOWER RESPIRATORY TRACT INFECTION
     Dosage: 500 MG, BID
     Route: 065
     Dates: start: 20141020, end: 20141024
  5. LANSOPRAZOLE. [Concomitant]
     Active Substance: LANSOPRAZOLE
     Dosage: 30 MG, DAILY
     Dates: start: 2013
  6. BUMETANIDE. [Concomitant]
     Active Substance: BUMETANIDE
     Dosage: 2 MG, DAILY
     Dates: start: 201311
  7. IVABRADINE [Suspect]
     Active Substance: IVABRADINE
     Indication: LEFT VENTRICULAR DYSFUNCTION
     Dosage: 7.5 MG, BID
     Route: 048
     Dates: start: 20131121

REACTIONS (7)
  - Palpitations [Recovered/Resolved]
  - Drug interaction [Recovered/Resolved]
  - Anxiety [Recovered/Resolved]
  - Photopsia [Recovered/Resolved]
  - Electrocardiogram ST-T segment abnormal [Recovered/Resolved]
  - Contraindicated drug administered [Recovered/Resolved]
  - Lower respiratory tract infection [Recovered/Resolved]

NARRATIVE: CASE EVENT DATE: 20141020
